FAERS Safety Report 7541682-5 (Version None)
Quarter: 2011Q2

REPORT INFORMATION
  Report Type: 
  Country: None (occurrence: None)
  Receive Date: 20110613
  Receipt Date: 20110530
  Transmission Date: 20111010
  Serious: Yes (Life-Threatening, Hospitalization)
  Sender: FDA-Public Use
  Company Number: DE-RANBAXY-2009RR-20547

PATIENT
  Age: 66 Year
  Sex: Female
  Weight: 90 kg

DRUGS (8)
  1. CLARITHROMYCIN [Suspect]
     Indication: GASTRITIS BACTERIAL
     Dosage: 500 MG, BID
     Route: 048
     Dates: start: 20080731, end: 20080806
  2. SPIRONOLACTONE [Concomitant]
     Indication: ASCITES
     Dosage: 100 MG, BID
     Route: 048
     Dates: start: 20080101, end: 20080829
  3. CORIC [Concomitant]
     Indication: HYPERTENSION
     Dosage: 10 MG, QD
     Route: 048
     Dates: start: 20050101, end: 20080829
  4. AMOXICILLIN [Suspect]
     Indication: HELICOBACTER GASTRITIS
     Dosage: 1 G, BID
     Route: 048
     Dates: start: 20080731, end: 20080806
  5. CLARITHROMYCIN [Suspect]
     Indication: HELICOBACTER GASTRITIS
  6. TOREM/GFR [Concomitant]
     Indication: ASCITES
     Dosage: 10 MG, BID
     Route: 048
     Dates: start: 20080802, end: 20080829
  7. ALLOPURINOL [Concomitant]
     Indication: BLOOD URIC ACID INCREASED
     Dosage: 300 MG, QD
     Route: 048
     Dates: start: 20070101, end: 20080829
  8. PROPRANOLOL [Concomitant]
     Indication: HYPERTENSION
     Dosage: 80 MG, TID
     Route: 048
     Dates: end: 20080829

REACTIONS (2)
  - SINOATRIAL BLOCK [None]
  - DIARRHOEA [None]
